FAERS Safety Report 4610675-X (Version None)
Quarter: 2005Q2

REPORT INFORMATION
  Report Type: 
  Country: None (occurrence: None)
  Receive Date: 20050301
  Receipt Date: 20041206
  Transmission Date: 20051028
  Serious: No
  Sender: FDA-Public Use
  Company Number: WAES 0412USA00718

PATIENT
  Age: 59 Year
  Sex: Female

DRUGS (3)
  1. ZETIA [Suspect]
     Indication: DYSLIPIDAEMIA
     Dosage: 10 MG/DAILY/PO
     Route: 048
     Dates: start: 20041202
  2. THERAPY UNSPECIFIED [Concomitant]
  3. ESTROGENS (UNSPECIFIED) [Concomitant]

REACTIONS (2)
  - MALAISE [None]
  - RASH [None]
